FAERS Safety Report 7550878-8 (Version None)
Quarter: 2011Q2

REPORT INFORMATION
  Report Type: 
  Country: None (occurrence: None)
  Receive Date: 20110609
  Receipt Date: 20110531
  Transmission Date: 20111010
  Serious: Yes (Hospitalization)
  Sender: FDA-Public Use
  Company Number: US-2011-10351

PATIENT
  Age: 4 Year
  Sex: Male

DRUGS (7)
  1. RITUXIMAB (RITUXIMAB) [Concomitant]
  2. IMMUNOGLOBULIN I.V (IMMUNOGLOBULIN) [Concomitant]
  3. CYCLOPHOSPHAMIDE [Suspect]
     Indication: BONE MARROW TRANSPLANT
     Dosage: 200 MG/KG,
  4. DEOXYCHOLIC ACID (DEOXYCHOLIC ACID) [Concomitant]
  5. TACROLIMUS [Concomitant]
  6. MYCOPHENOLATE MOFETIL [Concomitant]
  7. BUSULFEX [Suspect]
     Indication: BONE MARROW TRANSPLANT
     Dosage: 16 MG/KG, INTRAVENOUS
     Route: 042

REACTIONS (5)
  - MUCOSAL HAEMORRHAGE [None]
  - GRAFT VERSUS HOST DISEASE [None]
  - MUCOSAL INFLAMMATION [None]
  - CYTOMEGALOVIRUS VIRAEMIA [None]
  - BK VIRUS INFECTION [None]
